FAERS Safety Report 10678349 (Version 1)
Quarter: 2014Q4

REPORT INFORMATION
  Report Type: Spontaneous
  Country: PL (occurrence: PL)
  Receive Date: 20141229
  Receipt Date: 20141229
  Transmission Date: 20150529
  Serious: Yes (Hospitalization)
  Sender: FDA-Public Use
  Company Number: PL-JNJFOC-20141210994

PATIENT
  Age: 51 Year
  Sex: Male

DRUGS (25)
  1. COMBIVIR [Suspect]
     Active Substance: LAMIVUDINE\ZIDOVUDINE
     Indication: HIV INFECTION
     Route: 065
     Dates: start: 201010
  2. DDI [Concomitant]
     Active Substance: DIDANOSINE
     Route: 065
     Dates: start: 2003
  3. PREZISTA [Suspect]
     Active Substance: DARUNAVIR ETHANOLATE
     Indication: HIV INFECTION
     Dosage: 600 (UNSPECIFIED UNIT)
     Route: 048
     Dates: start: 2014
  4. VIDEX [Concomitant]
     Active Substance: DIDANOSINE
     Route: 065
     Dates: start: 2001
  5. KALETRA [Concomitant]
     Active Substance: LOPINAVIR\RITONAVIR
     Route: 065
     Dates: start: 2001
  6. PREZISTA [Suspect]
     Active Substance: DARUNAVIR ETHANOLATE
     Indication: HIV INFECTION
     Route: 048
     Dates: start: 201210
  7. TRUVADA [Suspect]
     Active Substance: EMTRICITABINE\TENOFOVIR DISOPROXIL FUMARATE
     Indication: HIV INFECTION
     Route: 065
     Dates: start: 2009
  8. COMBIVIR [Suspect]
     Active Substance: LAMIVUDINE\ZIDOVUDINE
     Indication: HIV INFECTION
     Route: 065
     Dates: start: 2001
  9. ISENTRESS [Suspect]
     Active Substance: RALTEGRAVIR POTASSIUM
     Indication: HIV INFECTION
     Route: 065
     Dates: start: 2014
  10. ISENTRESS [Suspect]
     Active Substance: RALTEGRAVIR POTASSIUM
     Indication: HIV INFECTION
     Route: 065
  11. AZIDOTHYMIDINE [Concomitant]
     Active Substance: ZIDOVUDINE
     Route: 065
     Dates: start: 1998
  12. LOPINAVIR [Concomitant]
     Active Substance: LOPINAVIR
     Route: 065
     Dates: start: 1998
  13. FORTOVASE [Concomitant]
     Active Substance: SAQUINAVIR
     Route: 065
     Dates: start: 2003
  14. PREZISTA [Suspect]
     Active Substance: DARUNAVIR ETHANOLATE
     Indication: HIV INFECTION
     Route: 048
     Dates: start: 2009
  15. NORVIR [Suspect]
     Active Substance: RITONAVIR
     Indication: HIV INFECTION
     Route: 065
     Dates: start: 201010
  16. NORVIR [Suspect]
     Active Substance: RITONAVIR
     Indication: HIV INFECTION
     Route: 065
     Dates: start: 2009
  17. ISENTRESS [Suspect]
     Active Substance: RALTEGRAVIR POTASSIUM
     Indication: HIV INFECTION
     Route: 065
     Dates: start: 201210
  18. VIRAMUNE [Concomitant]
     Active Substance: NEVIRAPINE
     Route: 065
     Dates: start: 2001
  19. D4T [Concomitant]
     Active Substance: STAVUDINE
     Route: 065
     Dates: start: 2003
  20. PREZISTA [Suspect]
     Active Substance: DARUNAVIR ETHANOLATE
     Indication: HIV INFECTION
     Route: 048
     Dates: start: 201010
  21. HIVID [Concomitant]
     Active Substance: ZALCITABINE
     Route: 065
     Dates: start: 1998
  22. NORVIR [Suspect]
     Active Substance: RITONAVIR
     Indication: HIV INFECTION
     Route: 065
     Dates: start: 201210
  23. NORVIR [Suspect]
     Active Substance: RITONAVIR
     Indication: HIV INFECTION
     Route: 065
     Dates: start: 2014
  24. STOCRIN [Concomitant]
     Active Substance: EFAVIRENZ
     Route: 065
     Dates: start: 2001
  25. ZERIT [Concomitant]
     Active Substance: STAVUDINE
     Route: 065
     Dates: start: 2001

REACTIONS (5)
  - Pulmonary tuberculosis [Recovered/Resolved]
  - Renal failure [Recovering/Resolving]
  - Portal hypertensive gastropathy [Unknown]
  - Hyperglycaemia [Recovered/Resolved]
  - Hepatic failure [Unknown]

NARRATIVE: CASE EVENT DATE: 201307
